FAERS Safety Report 17833898 (Version 1)
Quarter: 2020Q2

REPORT INFORMATION
  Report Type: Report from Study
  Country: MX (occurrence: MX)
  Receive Date: 20200528
  Receipt Date: 20200528
  Transmission Date: 20200714
  Serious: Yes (Other)
  Sender: FDA-Public Use
  Company Number: MX-ROCHE-2357993

PATIENT
  Age: 68 Year
  Sex: Female
  Weight: 54 kg

DRUGS (3)
  1. LUCENTIS [Suspect]
     Active Substance: RANIBIZUMAB
     Indication: MACULAR DEGENERATION
     Route: 031
     Dates: start: 2018
  2. LUCENTIS [Suspect]
     Active Substance: RANIBIZUMAB
     Indication: EYE INFLAMMATION
     Dosage: 0.5 MG, EVERY 1 AND HALF MONTH, STARTED 1 AND HALF YEAR AGO
     Route: 031
  3. RIVOTRIL [Suspect]
     Active Substance: CLONAZEPAM
     Indication: ANXIOLYTIC THERAPY
     Dosage: 2 DF, QD (STARTED 2 MONTHS AGO)
     Route: 048

REACTIONS (28)
  - Stress [Recovering/Resolving]
  - Anxiety [Not Recovered/Not Resolved]
  - Choroidal effusion [Recovered/Resolved with Sequelae]
  - Nervousness [Unknown]
  - Lethargy [Not Recovered/Not Resolved]
  - Product dose omission [Unknown]
  - Hypoaesthesia [Recovering/Resolving]
  - Visual impairment [Unknown]
  - Bipolar disorder [Unknown]
  - Emotional disorder [Recovering/Resolving]
  - Arthralgia [Unknown]
  - Bronchitis bacterial [Recovered/Resolved]
  - Sleep disorder [Recovered/Resolved]
  - Ocular discomfort [Recovering/Resolving]
  - Obsessive thoughts [Unknown]
  - Palpitations [Unknown]
  - Nasopharyngitis [Unknown]
  - Inappropriate schedule of product administration [Unknown]
  - Depression [Not Recovered/Not Resolved]
  - Pain [Unknown]
  - Eye haemorrhage [Recovered/Resolved with Sequelae]
  - Product use in unapproved indication [Unknown]
  - Hordeolum [Recovering/Resolving]
  - Vision blurred [Unknown]
  - Psychiatric symptom [Recovering/Resolving]
  - Off label use [Unknown]
  - Crying [Recovering/Resolving]
  - Eye swelling [Recovering/Resolving]

NARRATIVE: CASE EVENT DATE: 20190627
